FAERS Safety Report 13184673 (Version 2)
Quarter: 2017Q1

REPORT INFORMATION
  Report Type: Spontaneous
  Country: DE (occurrence: DE)
  Receive Date: 20170203
  Receipt Date: 20170206
  Transmission Date: 20170428
  Serious: No
  Sender: FDA-Public Use
  Company Number: PHHY2017DE014011

PATIENT
  Age: 24 Year
  Sex: Female

DRUGS (1)
  1. COSENTYX [Suspect]
     Active Substance: SECUKINUMAB
     Indication: ILIOLUMBAR SYNDROME
     Dosage: 150 MG, UNK
     Route: 058
     Dates: start: 20161202

REACTIONS (4)
  - Rheumatoid arthritis [Unknown]
  - Visual impairment [Unknown]
  - Migraine [Unknown]
  - Paralysis [Unknown]

NARRATIVE: CASE EVENT DATE: 20161212
